FAERS Safety Report 21682568 (Version 6)
Quarter: 2023Q2

REPORT INFORMATION
  Report Type: Spontaneous
  Country: US (occurrence: US)
  Receive Date: 20221205
  Receipt Date: 20230509
  Transmission Date: 20230722
  Serious: Yes (Other)
  Sender: FDA-Public Use
  Company Number: US-UPSHER-SMITH LABORATORIES, LLC-2022USL00943

PATIENT
  Sex: Female

DRUGS (7)
  1. ISOTRETINOIN [Suspect]
     Active Substance: ISOTRETINOIN
     Dosage: UNK
     Dates: start: 20220412, end: 2022
  2. ISOTRETINOIN [Suspect]
     Active Substance: ISOTRETINOIN
     Dosage: 30 MG, 2X/DAY
     Dates: start: 2022, end: 20221121
  3. ISOTRETINOIN [Suspect]
     Active Substance: ISOTRETINOIN
     Dosage: UNK
     Dates: start: 20220803, end: 2022
  4. AMLODIPINE [Concomitant]
     Active Substance: AMLODIPINE BESYLATE
     Dosage: UNK
     Dates: start: 2019
  5. HYDROCHLOROTHIAZIDE [Concomitant]
     Active Substance: HYDROCHLOROTHIAZIDE
     Dosage: UNK
     Dates: start: 2021
  6. KARIVA [Concomitant]
     Active Substance: DESOGESTREL\ETHINYL ESTRADIOL
     Dosage: UNK
     Dates: start: 2013, end: 20221121
  7. VIORELE [Concomitant]
     Active Substance: DESOGESTREL\ETHINYL ESTRADIOL

REACTIONS (8)
  - Exposure during pregnancy [Recovered/Resolved]
  - Ectopic pregnancy [Recovered/Resolved]
  - Vaginal haemorrhage [Recovered/Resolved]
  - Treatment noncompliance [Recovered/Resolved]
  - Nasal dryness [Not Recovered/Not Resolved]
  - Chapped lips [Not Recovered/Not Resolved]
  - Dry skin [Not Recovered/Not Resolved]
  - Epistaxis [Not Recovered/Not Resolved]

NARRATIVE: CASE EVENT DATE: 20220101
